FAERS Safety Report 10169165 (Version 1)
Quarter: 2014Q2

REPORT INFORMATION
  Report Type: Spontaneous
  Country: US (occurrence: US)
  Receive Date: 20140513
  Receipt Date: 20140513
  Transmission Date: 20141212
  Serious: No
  Sender: FDA-Public Use
  Company Number: US-TARO-2014P1002737

PATIENT
  Age: 19 Month
  Sex: Female
  Weight: 9.98 kg

DRUGS (1)
  1. CETIRIZINE HCL ORAL SOLUTION ALLERGY 1 MG/ML OTC [Suspect]
     Route: 048
     Dates: start: 20140326, end: 20140328

REACTIONS (2)
  - Accidental overdose [Recovered/Resolved]
  - Somnolence [Recovered/Resolved]
